FAERS Safety Report 15681736 (Version 5)
Quarter: 2019Q1

REPORT INFORMATION
  Report Type: Report from Study
  Country: CA (occurrence: CA)
  Receive Date: 20181203
  Receipt Date: 20190301
  Transmission Date: 20190417
  Serious: Yes (Life-Threatening, Hospitalization, Other)
  Sender: FDA-Public Use
  Company Number: CA-BRISTOL-MYERS SQUIBB COMPANY-BMS-2018-017778

PATIENT
  Age: 77 Year
  Sex: Female

DRUGS (3)
  1. COUMADIN [Suspect]
     Active Substance: WARFARIN SODIUM
     Indication: TACHYCARDIA
     Dosage: UNK
     Route: 065
     Dates: start: 20181115
  2. ABATACEPT [Suspect]
     Active Substance: ABATACEPT
     Indication: RHEUMATOID ARTHRITIS
     Dosage: 500 MG, QMO
     Route: 042
     Dates: start: 20171127
  3. COUMADIN [Suspect]
     Active Substance: WARFARIN SODIUM
     Indication: BLOOD PRESSURE MEASUREMENT
     Route: 065

REACTIONS (11)
  - Cardiac valve disease [Not Recovered/Not Resolved]
  - Hypertension [Recovered/Resolved]
  - Eye pain [Recovered/Resolved]
  - Mitral valve disease [Unknown]
  - Productive cough [Unknown]
  - Nasopharyngitis [Not Recovered/Not Resolved]
  - Atrial fibrillation [Recovered/Resolved]
  - Fatigue [Unknown]
  - Tachycardia [Not Recovered/Not Resolved]
  - Colitis [Unknown]
  - Blood pressure decreased [Unknown]

NARRATIVE: CASE EVENT DATE: 20180221
